FAERS Safety Report 6046018-7 (Version None)
Quarter: 2009Q1

REPORT INFORMATION
  Report Type: 
  Country: None (occurrence: None)
  Receive Date: 20090116
  Receipt Date: 20090106
  Transmission Date: 20090719
  Serious: Yes (Hospitalization)
  Sender: FDA-Public Use
  Company Number: 2009PV037367

PATIENT
  Age: 47 Year
  Sex: Female

DRUGS (7)
  1. SYMLIN [Suspect]
     Indication: TYPE 2 DIABETES MELLITUS
     Dosage: 60 MCG;
     Dates: start: 20081201
  2. SYMLIN [Suspect]
     Indication: WEIGHT DECREASED
     Dosage: 60 MCG;
     Dates: start: 20081201
  3. HUMULIN N [Concomitant]
  4. HUMALOG [Concomitant]
  5. SYNTHROID [Concomitant]
  6. ASPIRIN [Concomitant]
  7. LASIX [Concomitant]

REACTIONS (2)
  - BLOOD GLUCOSE INCREASED [None]
  - PNEUMONIA [None]
